FAERS Safety Report 25845786 (Version 1)
Quarter: 2025Q3

REPORT INFORMATION
  Report Type: Spontaneous
  Country: US (occurrence: None)
  Receive Date: 20250924
  Receipt Date: 20250924
  Transmission Date: 20251021
  Serious: Yes (Life-Threatening, Hospitalization)
  Sender: FDA-CTU
  Company Number: None

PATIENT
  Age: 81 Year
  Sex: Male
  Weight: 76.5 kg

DRUGS (3)
  1. NEULASTA [Suspect]
     Active Substance: PEGFILGRASTIM
     Indication: Neutropenia
     Dates: start: 20250919, end: 20250919
  2. GEMCITABINE [Concomitant]
     Active Substance: GEMCITABINE
  3. CISPLATIN [Concomitant]
     Active Substance: CISPLATIN

REACTIONS (8)
  - Bone pain [None]
  - Spinal pain [None]
  - Pelvic pain [None]
  - Bone pain [None]
  - Drug ineffective [None]
  - Near death experience [None]
  - Toxicity to various agents [None]
  - Gait disturbance [None]

NARRATIVE: CASE EVENT DATE: 20250922
